FAERS Safety Report 11938862 (Version 1)
Quarter: 2016Q1

REPORT INFORMATION
  Report Type: Report from Study
  Country: JP (occurrence: JP)
  Receive Date: 20160122
  Receipt Date: 20160122
  Transmission Date: 20160526
  Serious: Yes (Other)
  Sender: FDA-Public Use
  Company Number: JP-GLAXOSMITHKLINE-B0779411A

PATIENT
  Age: 31 Year
  Sex: Female
  Weight: 81 kg

DRUGS (18)
  1. HALCION [Concomitant]
     Active Substance: TRIAZOLAM
     Indication: INSOMNIA
     Dosage: 0.25 MG, QD
     Dates: start: 20080425
  2. LAMOTRIGINE. [Suspect]
     Active Substance: LAMOTRIGINE
     Dosage: 25 MG, QD
     Route: 048
     Dates: start: 20111221, end: 20111227
  3. ABILIFY [Concomitant]
     Active Substance: ARIPIPRAZOLE
     Indication: MANIA
     Dosage: 12 MG, 1D
     Dates: start: 20111122, end: 20120104
  4. AKINETON [Concomitant]
     Active Substance: BIPERIDEN HYDROCHLORIDE
     Indication: PARKINSON^S DISEASE
     Dosage: 2 MG, TID
  5. LOXONIN [Concomitant]
     Active Substance: LOXOPROFEN SODIUM
     Indication: TONSILLITIS
     Dates: start: 20120104
  6. ROHYPNOL [Concomitant]
     Active Substance: FLUNITRAZEPAM
     Indication: TREMOR
     Dosage: 2 MG, QD
     Route: 048
     Dates: start: 20070405
  7. ZESULAN [Concomitant]
     Active Substance: MEQUITAZINE
     Indication: TONSILLITIS
     Dates: start: 20120104
  8. SEROQUEL [Concomitant]
     Active Substance: QUETIAPINE FUMARATE
     Indication: MANIA
     Dosage: 200 MG, 1D
     Dates: start: 20111207, end: 20120104
  9. LANDSEN [Concomitant]
     Active Substance: CLONAZEPAM
     Indication: TREMOR
     Dosage: 1 MG, TID
     Dates: start: 20111130
  10. LAMOTRIGINE. [Suspect]
     Active Substance: LAMOTRIGINE
     Indication: SCHIZOAFFECTIVE DISORDER
     Dosage: 25 MG, QOD
     Route: 048
     Dates: start: 20111207, end: 20111220
  11. LIMAS [Concomitant]
     Active Substance: LITHIUM CARBONATE
     Indication: MANIA
     Dosage: 800 MG, 1D
     Dates: start: 20110720, end: 20120104
  12. MUCODYNE [Concomitant]
     Active Substance: CARBOCYSTEINE
     Indication: TONSILLITIS
     Dates: start: 20120104
  13. ONON [Concomitant]
     Active Substance: PRANLUKAST
     Indication: TONSILLITIS
     Dates: start: 20120104
  14. GENINAX [Concomitant]
     Active Substance: GARENOXACIN MESYLATE
     Indication: TONSILLITIS
     Dates: start: 20120104
  15. LAMOTRIGINE. [Suspect]
     Active Substance: LAMOTRIGINE
     Dosage: 50 MG, QD
     Route: 048
     Dates: start: 20111228, end: 201201
  16. DEPAKENE [Concomitant]
     Active Substance: VALPROIC ACID
     Indication: MANIA
     Dosage: 800 MG, 1D
     Dates: start: 20110720, end: 20120104
  17. BENZALIN [Concomitant]
     Active Substance: NITRAZEPAM
     Indication: INSOMNIA
     Dosage: 5 MG, QD
     Dates: start: 20070406
  18. TRANSAMIN [Concomitant]
     Active Substance: TRANEXAMIC ACID
     Indication: TONSILLITIS
     Dates: start: 20120104

REACTIONS (5)
  - Alanine aminotransferase increased [Not Recovered/Not Resolved]
  - Drug reaction with eosinophilia and systemic symptoms [Recovered/Resolved]
  - White blood cell count increased [Not Recovered/Not Resolved]
  - Blood cholesterol increased [Not Recovered/Not Resolved]
  - Erythema multiforme [Recovered/Resolved]

NARRATIVE: CASE EVENT DATE: 20120107
